FAERS Safety Report 9690196 (Version 3)
Quarter: 2014Q3

REPORT INFORMATION
  Report Type: Report from Study
  Country: MX (occurrence: MX)
  Receive Date: 20131115
  Receipt Date: 20140702
  Transmission Date: 20150326
  Serious: Yes (Death)
  Sender: FDA-Public Use
  Company Number: PHHY2013MX130395

PATIENT
  Age: 52 Year
  Sex: Male

DRUGS (6)
  1. HYDROXYUREA. [Concomitant]
     Active Substance: HYDROXYUREA
     Dosage: 200 MG, Q8H
     Route: 048
  2. GLIVEC [Suspect]
     Active Substance: IMATINIB MESYLATE
     Indication: CHRONIC MYELOID LEUKAEMIA
     Dosage: 400 MG, UNK
     Dates: start: 20100422, end: 20100729
  3. HYDROXYUREA. [Concomitant]
     Active Substance: HYDROXYUREA
     Dosage: UNK UKN, UNK
     Dates: start: 20100210, end: 20100422
  4. GLIVEC [Suspect]
     Active Substance: IMATINIB MESYLATE
     Dosage: 800 MG, UNK
     Dates: start: 20100729
  5. GLIVEC [Suspect]
     Active Substance: IMATINIB MESYLATE
     Dosage: 500 MG, UNK
     Dates: start: 20121004
  6. HYDROXYUREA. [Concomitant]
     Active Substance: HYDROXYUREA
     Dosage: 500 MG, Q12H
     Route: 048

REACTIONS (4)
  - Death [Fatal]
  - Dyspnoea [Unknown]
  - No therapeutic response [Unknown]
  - Treatment failure [Unknown]

NARRATIVE: CASE EVENT DATE: 20110511
